FAERS Safety Report 7926913-1 (Version None)
Quarter: 2011Q4

REPORT INFORMATION
  Report Type: 
  Country: None (occurrence: None)
  Receive Date: 20111118
  Receipt Date: 20111108
  Transmission Date: 20120403
  Serious: Yes (Hospitalization)
  Sender: FDA-Public Use
  Company Number: US-ELI_LILLY_AND_COMPANY-US201111003281

PATIENT
  Sex: Female

DRUGS (9)
  1. HUMULIN N [Suspect]
     Indication: TYPE 1 DIABETES MELLITUS
     Dosage: 10 U, BID
     Dates: start: 19850101, end: 20110801
  2. HUMALOG [Suspect]
     Indication: TYPE 1 DIABETES MELLITUS
     Dosage: UNK, OTHER
     Dates: start: 20110801
  3. LISINOPRIL [Concomitant]
     Dosage: 40 MG, UNKNOWN
  4. HUMALOG [Suspect]
     Dosage: UNK, OTHER
     Dates: start: 20110801
  5. HUMULIN R [Suspect]
     Indication: TYPE 1 DIABETES MELLITUS
     Dosage: UNK, PRN
     Dates: start: 19850101, end: 20110801
  6. HUMALOG [Suspect]
     Dosage: UNK, OTHER
     Dates: start: 20110801
  7. LISINOPRIL [Concomitant]
     Dosage: 10 MG, UNKNOWN
  8. LEVOTHYROXINE SODIUM [Concomitant]
     Dosage: 0.88 DF, UNKNOWN
  9. LANTUS [Concomitant]
     Dosage: UNK

REACTIONS (6)
  - LOSS OF CONSCIOUSNESS [None]
  - DRUG DOSE OMISSION [None]
  - BLOOD GLUCOSE FLUCTUATION [None]
  - DRUG INEFFECTIVE [None]
  - DIABETIC KETOACIDOSIS [None]
  - BLOOD GLUCOSE INCREASED [None]
